FAERS Safety Report 13155844 (Version 1)
Quarter: 2017Q1

REPORT INFORMATION
  Report Type: Spontaneous
  Country: US (occurrence: US)
  Receive Date: 20170126
  Receipt Date: 20170126
  Transmission Date: 20170428
  Serious: No
  Sender: FDA-Public Use
  Company Number: US-ROCHE-754294

PATIENT
  Age: 71 Year
  Sex: Male
  Weight: 108.9 kg

DRUGS (3)
  1. CLONAZEPAM. [Suspect]
     Active Substance: CLONAZEPAM
     Indication: ANXIETY
     Route: 048
  2. CLARITIN [Concomitant]
     Active Substance: LORATADINE
     Route: 065
  3. VALIUM [Suspect]
     Active Substance: DIAZEPAM
     Indication: ANXIETY
     Route: 048

REACTIONS (4)
  - Drug ineffective [Unknown]
  - Strabismus [Unknown]
  - Product quality issue [Unknown]
  - Blindness [Unknown]

NARRATIVE: CASE EVENT DATE: 20110108
